FAERS Safety Report 8278408-6 (Version None)
Quarter: 2012Q2

REPORT INFORMATION
  Report Type: 
  Country: None (occurrence: None)
  Receive Date: 20120412
  Receipt Date: 20120201
  Transmission Date: 20120825
  Serious: No
  Sender: FDA-Public Use
  Company Number: US-ASTRAZENECA-2011SE38903

PATIENT
  Age: 55 Year
  Sex: Female
  Weight: 54.4 kg

DRUGS (28)
  1. SEROQUEL [Suspect]
     Indication: TACHYPHRENIA
     Route: 048
     Dates: start: 20090101, end: 20110701
  2. PROBIOTICS [Concomitant]
  3. SEROQUEL [Suspect]
     Route: 048
  4. SEROQUEL [Suspect]
     Route: 048
  5. ACTIVIA [Concomitant]
  6. SEROQUEL [Suspect]
     Route: 048
     Dates: start: 20110701, end: 20111101
  7. SEROQUEL [Suspect]
     Route: 048
     Dates: start: 20110701, end: 20111101
  8. TOPAMAX [Concomitant]
  9. NEXIUM [Suspect]
     Indication: GASTROOESOPHAGEAL REFLUX DISEASE
     Route: 048
  10. SEROQUEL [Suspect]
     Route: 048
  11. SEROQUEL [Suspect]
     Route: 048
  12. LEVSIN PB [Concomitant]
  13. ADVAIR HCF [Concomitant]
     Route: 055
  14. SEROQUEL [Suspect]
     Indication: BIPOLAR DISORDER
     Route: 048
     Dates: start: 20090101, end: 20110701
  15. SEROQUEL [Suspect]
     Indication: MANIA
     Route: 048
     Dates: start: 20090101, end: 20110701
  16. SINUS IRRIGATION [Concomitant]
  17. DEXELANT [Concomitant]
  18. REGLAN [Concomitant]
  19. SEROQUEL [Suspect]
     Route: 048
     Dates: start: 20110701, end: 20111101
  20. SEROQUEL [Suspect]
     Route: 048
  21. GEODON [Concomitant]
  22. NEXIUM [Suspect]
     Route: 048
  23. SEROQUEL [Suspect]
     Route: 048
  24. CELEXA [Concomitant]
  25. LYRICA [Concomitant]
  26. VICODIN [Concomitant]
  27. NASONEX [Concomitant]
  28. PRILOSEC OTC [Concomitant]
     Route: 048

REACTIONS (26)
  - ADVERSE DRUG REACTION [None]
  - MYCOTIC ALLERGY [None]
  - DECREASED APPETITE [None]
  - DIARRHOEA [None]
  - MAJOR DEPRESSION [None]
  - CHEST PAIN [None]
  - ABDOMINAL DISCOMFORT [None]
  - DRUG DOSE OMISSION [None]
  - DRUG PRESCRIBING ERROR [None]
  - GASTROINTESTINAL HYPOMOTILITY [None]
  - CONSTIPATION [None]
  - PERSONALITY CHANGE [None]
  - OESOPHAGEAL HYPOMOTILITY [None]
  - NEGATIVE THOUGHTS [None]
  - DYSPEPSIA [None]
  - SOMNOLENCE [None]
  - ABDOMINAL PAIN [None]
  - GASTROOESOPHAGEAL REFLUX DISEASE [None]
  - TACHYPHRENIA [None]
  - MALAISE [None]
  - GASTROINTESTINAL DISORDER [None]
  - EAR INFECTION [None]
  - MASS [None]
  - PHARYNGITIS [None]
  - FLATULENCE [None]
  - INAPPROPRIATE SCHEDULE OF DRUG ADMINISTRATION [None]
